FAERS Safety Report 5913525-4 (Version None)
Quarter: 2008Q4

REPORT INFORMATION
  Report Type: 
  Country: None (occurrence: None)
  Receive Date: 20081009
  Receipt Date: 20080628
  Transmission Date: 20090506
  Serious: No
  Sender: FDA-Public Use
  Company Number: US-BAYER-200812849BCC

PATIENT
  Age: 61 Year
  Sex: Female
  Weight: 73 kg

DRUGS (4)
  1. ALEVE (CAPLET) [Suspect]
     Indication: HEADACHE
     Dosage: TOTAL DAILY DOSE: 1320 MG  UNIT DOSE: 220 MG
     Route: 048
     Dates: start: 20080628
  2. BLOOD PRESSURE MEDICATION [Concomitant]
  3. ESTROGENIC SUBSTANCE [Concomitant]
  4. AMBIEN [Concomitant]

REACTIONS (2)
  - DIZZINESS [None]
  - NAUSEA [None]
